FAERS Safety Report 7892905-4 (Version None)
Quarter: 2011Q4

REPORT INFORMATION
  Report Type: 
  Country: None (occurrence: None)
  Receive Date: 20111104
  Receipt Date: 20111031
  Transmission Date: 20120403
  Serious: Yes (Hospitalization)
  Sender: FDA-Public Use
  Company Number: US-BRISTOL-MYERS SQUIBB COMPANY-16206914

PATIENT
  Age: 80 Year
  Sex: Male
  Weight: 68 kg

DRUGS (2)
  1. PLAVIX [Suspect]
  2. COUMADIN [Suspect]

REACTIONS (2)
  - HAEMORRHAGE [None]
  - URINARY TRACT INFECTION [None]
